FAERS Safety Report 24331632 (Version 1)
Quarter: 2024Q3

REPORT INFORMATION
  Report Type: Report from Study
  Country: HK (occurrence: HK)
  Receive Date: 20240918
  Receipt Date: 20240918
  Transmission Date: 20241016
  Serious: Yes (Other)
  Sender: GILEAD
  Company Number: HK-GILEAD-2024-0687549

PATIENT
  Age: 72 Year
  Sex: Female
  Weight: 58.6 kg

DRUGS (1)
  1. SACITUZUMAB GOVITECAN-HZIY [Suspect]
     Active Substance: SACITUZUMAB GOVITECAN-HZIY
     Indication: Triple negative breast cancer
     Dosage: 8 VIALS FOR 600MG CURRENT DOSE
     Route: 065

REACTIONS (1)
  - Disease progression [Not Recovered/Not Resolved]
